FAERS Safety Report 7043572-3 (Version None)
Quarter: 2010Q4

REPORT INFORMATION
  Report Type: 
  Country: None (occurrence: None)
  Receive Date: 20101013
  Receipt Date: 20101011
  Transmission Date: 20110411
  Serious: Yes (Death)
  Sender: FDA-Public Use
  Company Number: A0883336A

PATIENT
  Age: 64 Year
  Sex: Male

DRUGS (3)
  1. VALTREX [Suspect]
     Indication: HERPES ZOSTER
     Dosage: 1G UNKNOWN
     Route: 048
     Dates: start: 20091110, end: 20091118
  2. CHEMOTHERAPY [Concomitant]
  3. RADIATION THERAPY [Concomitant]

REACTIONS (1)
  - DISEASE PROGRESSION [None]
